FAERS Safety Report 5730158-3 (Version None)
Quarter: 2008Q2

REPORT INFORMATION
  Report Type: 
  Country: None (occurrence: None)
  Receive Date: 20080505
  Receipt Date: 20080505
  Transmission Date: 20081010
  Serious: Yes (Hospitalization)
  Sender: FDA-Public Use
  Company Number: None

PATIENT
  Sex: Male
  Weight: 118.6 kg

DRUGS (12)
  1. IRINOTECAN   PHARMACIA/TEVA [Suspect]
     Indication: COLON CANCER METASTATIC
     Dosage: 432 MG INTRAVENOUS (NOT OTHERWISE SPECIFIED)
     Route: 042
     Dates: start: 20080117, end: 20080317
  2. CETUXIMAB   BRISTOL-MYERS SQUIBB [Suspect]
     Indication: COLON CANCER METASTATIC
     Dosage: 1200 MG INTRAVENOUS (NOT OTHERWISE SPECIFIED)
     Route: 042
     Dates: start: 20080117, end: 20080317
  3. ASPIRIN [Concomitant]
  4. COLACE [Concomitant]
  5. LASIX [Concomitant]
  6. GLIPIZIDE [Concomitant]
  7. HYDRALAZINE HCL [Concomitant]
  8. LIPITOR [Concomitant]
  9. METFORMIN HCL [Concomitant]
  10. CLINDAMYACIN [Concomitant]
  11. COUMADIN [Concomitant]
  12. LOVENOX [Concomitant]

REACTIONS (2)
  - DYSPNOEA [None]
  - TACHYCARDIA [None]
